FAERS Safety Report 6455435-2 (Version None)
Quarter: 2009Q4

REPORT INFORMATION
  Report Type: 
  Country: None (occurrence: None)
  Receive Date: 20091125
  Receipt Date: 20091016
  Transmission Date: 20100525
  Serious: No
  Sender: FDA-Public Use
  Company Number: US-ABBOTT-09P-163-0576605-00

PATIENT
  Sex: Female

DRUGS (4)
  1. SIMCOR [Suspect]
     Indication: BLOOD TRIGLYCERIDES INCREASED
     Dosage: 500MG/20MG 2 QHS
     Route: 048
     Dates: start: 20090110, end: 20090219
  2. JANUMET [Concomitant]
     Indication: DIABETES MELLITUS
  3. EFFEXOR XR [Concomitant]
     Indication: DRUG USE FOR UNKNOWN INDICATION
  4. CINESTIN [Concomitant]
     Indication: DIABETES MELLITUS

REACTIONS (1)
  - PYREXIA [None]
